APPROVED DRUG PRODUCT: ZYRTEC ALLERGY
Active Ingredient: CETIRIZINE HYDROCHLORIDE
Strength: 10MG
Dosage Form/Route: TABLET, ORALLY DISINTEGRATING;ORAL
Application: N022578 | Product #001
Applicant: KENVUE BRANDS LLC
Approved: Sep 3, 2010 | RLD: Yes | RS: Yes | Type: OTC